FAERS Safety Report 14491284 (Version 1)
Quarter: 2018Q1

REPORT INFORMATION
  Report Type: Spontaneous
  Country: BE (occurrence: BE)
  Receive Date: 20180206
  Receipt Date: 20180206
  Transmission Date: 20180509
  Serious: Yes (Other)
  Sender: FDA-Public Use
  Company Number: PHHY2016BE186015

PATIENT
  Age: 73 Year
  Sex: Female
  Weight: 52.4 kg

DRUGS (10)
  1. AVASTIN [Suspect]
     Active Substance: BEVACIZUMAB
     Dosage: 795 MG, QW
     Route: 042
  2. DEXAMETHASONE. [Concomitant]
     Active Substance: DEXAMETHASONE
     Indication: PRODUCT USED FOR UNKNOWN INDICATION
     Route: 065
  3. PACLITAXEL. [Suspect]
     Active Substance: PACLITAXEL
     Dosage: 212.8 MG/M2, QW
     Route: 042
     Dates: start: 20160929
  4. AVASTIN [Suspect]
     Active Substance: BEVACIZUMAB
     Indication: OVARIAN CANCER
     Dosage: 810 MG, QW
     Route: 042
     Dates: start: 20160908
  5. TRADONAL [Concomitant]
     Active Substance: TRAMADOL HYDROCHLORIDE
     Indication: PRODUCT USED FOR UNKNOWN INDICATION
     Route: 065
  6. LITICAN [Concomitant]
     Active Substance: ALIZAPRIDE HYDROCHLORIDE
     Indication: PRODUCT USED FOR UNKNOWN INDICATION
     Route: 065
  7. PACLITAXEL. [Suspect]
     Active Substance: PACLITAXEL
     Indication: OVARIAN CANCER
     Dosage: 269.5 MG/M2, QW
     Route: 042
     Dates: start: 20160818
  8. CARBOPLATIN. [Suspect]
     Active Substance: CARBOPLATIN
     Indication: OVARIAN CANCER
     Dosage: 1 OT, QW
     Route: 042
     Dates: start: 20160818
  9. CETIRIZINE [Concomitant]
     Active Substance: CETIRIZINE HYDROCHLORIDE
     Indication: PRODUCT USED FOR UNKNOWN INDICATION
     Route: 065
  10. LYRICA [Concomitant]
     Active Substance: PREGABALIN
     Indication: PRODUCT USED FOR UNKNOWN INDICATION
     Route: 065

REACTIONS (4)
  - Headache [Not Recovered/Not Resolved]
  - Arthralgia [Not Recovered/Not Resolved]
  - Epistaxis [Not Recovered/Not Resolved]
  - Hypokalaemia [Recovered/Resolved]

NARRATIVE: CASE EVENT DATE: 20160831
